FAERS Safety Report 24961489 (Version 2)
Quarter: 2025Q1

REPORT INFORMATION
  Report Type: Spontaneous
  Country: JP (occurrence: JP)
  Receive Date: 20250212
  Receipt Date: 20250312
  Transmission Date: 20250409
  Serious: Yes (Other)
  Sender: ABBVIE
  Company Number: JP-TAKEDA-2025TJP001484

PATIENT
  Age: 77 Year
  Sex: Male

DRUGS (1)
  1. LEUPLIN [Suspect]
     Active Substance: LEUPROLIDE ACETATE
     Indication: Prostate cancer
     Dosage: PRO FOR INJECTION KIT 22.5 MG?22.5 MILLIGRAM, Q6MONTHS
     Route: 065

REACTIONS (1)
  - Rib fracture [Unknown]
